FAERS Safety Report 16285120 (Version 1)
Quarter: 2019Q2

REPORT INFORMATION
  Report Type: Spontaneous
  Country: IT (occurrence: IT)
  Receive Date: 20190508
  Receipt Date: 20190508
  Transmission Date: 20190711
  Serious: Yes (Other)
  Sender: FDA-Public Use
  Company Number: IT-SUN PHARMACEUTICAL INDUSTRIES LTD-2019RR-207268

PATIENT
  Age: 72 Year
  Sex: Male

DRUGS (4)
  1. FLUOROURACIL. [Suspect]
     Active Substance: FLUOROURACIL
     Indication: COLON CANCER
     Dosage: 1680 MILLIGRAM, CYCLICAL
     Route: 042
     Dates: start: 20190115, end: 20190410
  2. DOXIFLURIDINE [Suspect]
     Active Substance: DOXIFLURIDINE
     Indication: COLON CANCER
     Dosage: 560 MILLIGRAM, CYCLICAL
     Route: 042
     Dates: start: 20190115, end: 20190410
  3. OXALIPLATIN. [Suspect]
     Active Substance: OXALIPLATIN
     Indication: COLON CANCER
     Dosage: 120 MILLIGRAM, CYCLICAL
     Route: 042
     Dates: start: 20190115, end: 20190410
  4. AVASTIN [Suspect]
     Active Substance: BEVACIZUMAB
     Indication: COLON CANCER
     Dosage: 250 MILLIGRAM, CYCLICAL
     Route: 042
     Dates: start: 20190115, end: 20190410

REACTIONS (4)
  - Paraesthesia [Recovered/Resolved]
  - Balance disorder [Recovered/Resolved]
  - Nausea [Recovered/Resolved]
  - Vomiting [Recovered/Resolved]

NARRATIVE: CASE EVENT DATE: 20190221
